FAERS Safety Report 10395528 (Version 1)
Quarter: 2014Q1

REPORT INFORMATION
  Report Type: Spontaneous
  Country: US (occurrence: None)
  Receive Date: 20130107
  Receipt Date: 20130107
  Transmission Date: 20141002
  Serious: No
  Sender: FDA-Public Use
  Company Number: PHEH2012US013886

PATIENT
  Age: 38 Year
  Sex: Female

DRUGS (1)
  1. GILENYA (FTY) CAPSULE [Suspect]
     Indication: MULTIPLE SCLEROSIS
     Route: 048
     Dates: start: 20120711

REACTIONS (8)
  - Hypokinesia [None]
  - Influenza [None]
  - Ear infection [None]
  - Sinusitis [None]
  - Dizziness [None]
  - Myalgia [None]
  - Fatigue [None]
  - Back pain [None]
